FAERS Safety Report 6179474-4 (Version None)
Quarter: 2009Q2

REPORT INFORMATION
  Report Type: 
  Country: None (occurrence: None)
  Receive Date: 20090505
  Receipt Date: 20090420
  Transmission Date: 20091009
  Serious: Yes (Hospitalization)
  Sender: FDA-Public Use
  Company Number: NL-ROCHE-628779

PATIENT

DRUGS (3)
  1. CAPECITABINE [Suspect]
     Indication: GASTRIC CANCER
     Route: 065
     Dates: start: 20081205
  2. PANTOZOL [Concomitant]
     Dosage: FREQUENCY:1 DD
  3. FRAXIPARINE [Concomitant]
     Dosage: FREQUENCY:1 DD
     Dates: start: 20090209

REACTIONS (1)
  - ABSCESS [None]
